FAERS Safety Report 17615839 (Version 1)
Quarter: 2020Q1

REPORT INFORMATION
  Report Type: Spontaneous
  Country: US (occurrence: US)
  Receive Date: 20200331
  Receipt Date: 20200331
  Transmission Date: 20200409
  Serious: Yes (Other)
  Sender: FDA-Public Use
  Company Number: None

PATIENT
  Age: 71 Year
  Sex: Male

DRUGS (1)
  1. MONONINE [Suspect]
     Active Substance: COAGULATION FACTOR IX HUMAN
     Indication: FACTOR IX DEFICIENCY
     Dosage: ?          OTHER DOSE:INFUSE 4000-8000UNITS PRN BLEEDS;OTHER FREQUENCY:PRN ;?
     Route: 042
     Dates: start: 20150611, end: 20190222

REACTIONS (2)
  - Headache [None]
  - Nausea [None]
